FAERS Safety Report 5894608-4 (Version None)
Quarter: 2008Q3

REPORT INFORMATION
  Report Type: 
  Country: None (occurrence: None)
  Receive Date: 20080922
  Receipt Date: 20080915
  Transmission Date: 20090109
  Serious: Yes (Death)
  Sender: FDA-Public Use
  Company Number: 2008AL010502

PATIENT
  Age: 82 Year
  Sex: Male

DRUGS (1)
  1. DIGOXIN [Suspect]
     Indication: CARDIAC FAILURE CONGESTIVE
     Dosage: 0.125MG, PO
     Route: 048
     Dates: start: 20061201, end: 20071102

REACTIONS (10)
  - ANHEDONIA [None]
  - CARDIAC ARREST [None]
  - DISORIENTATION [None]
  - DIZZINESS [None]
  - EATING DISORDER [None]
  - ECONOMIC PROBLEM [None]
  - INJURY [None]
  - MENTAL STATUS CHANGES [None]
  - PAIN [None]
  - THERAPEUTIC AGENT TOXICITY [None]
